FAERS Safety Report 6193393-9 (Version None)
Quarter: 2009Q2

REPORT INFORMATION
  Report Type: 
  Country: None (occurrence: None)
  Receive Date: 20090514
  Receipt Date: 20090514
  Transmission Date: 20091009
  Serious: No
  Sender: FDA-Public Use
  Company Number: None

PATIENT
  Age: 16 Year
  Sex: Male
  Weight: 76.2043 kg

DRUGS (1)
  1. ACYCLOVIR [Suspect]
     Dosage: PO
     Route: 048

REACTIONS (3)
  - DIZZINESS [None]
  - DYSPNOEA [None]
  - FATIGUE [None]
